FAERS Safety Report 9804206 (Version 1)
Quarter: 2014Q1

REPORT INFORMATION
  Report Type: Spontaneous
  Country: US (occurrence: None)
  Receive Date: 20140106
  Receipt Date: 20140106
  Transmission Date: 20141002
  Serious: Yes (Other)
  Sender: FDA-Public Use
  Company Number: KAD201312-001768

PATIENT
  Age: 60 Year
  Sex: Female
  Weight: 57.15 kg

DRUGS (3)
  1. RIBASPHERE [Suspect]
     Indication: HEPATITIS C
     Dosage: 800 MG (400 MG IN AM AND 400 MG IN PM), ORAL
     Route: 048
     Dates: start: 20130708
  2. INCIVEK (TELAPREVIR) [Suspect]
     Dates: start: 20130708
  3. PEGASYS [Suspect]
     Dosage: , 1 WK, INJECTION

REACTIONS (5)
  - Loss of consciousness [None]
  - Myalgia [None]
  - Influenza like illness [None]
  - Face injury [None]
  - Excoriation [None]
